FAERS Safety Report 7682132-8 (Version None)
Quarter: 2011Q3

REPORT INFORMATION
  Report Type: 
  Country: None (occurrence: None)
  Receive Date: 20110815
  Receipt Date: 20110810
  Transmission Date: 20111222
  Serious: Yes (Hospitalization)
  Sender: FDA-Public Use
  Company Number: JP-EISAI INC-E2020-09500-SPO-JP

PATIENT
  Age: 83 Year
  Sex: Female

DRUGS (3)
  1. ARICEPT [Suspect]
     Route: 048
     Dates: start: 20091107, end: 20091115
  2. ARIMIDEX [Concomitant]
     Dates: end: 20100101
  3. ARICEPT [Suspect]
     Indication: DEMENTIA ALZHEIMER'S TYPE
     Route: 048
     Dates: start: 20091101, end: 20091106

REACTIONS (4)
  - DELIRIUM [None]
  - HALLUCINATION [None]
  - PYREXIA [None]
  - DYSPHAGIA [None]
